FAERS Safety Report 25290629 (Version 6)
Quarter: 2025Q3

REPORT INFORMATION
  Report Type: Report from Study
  Country: CO (occurrence: CO)
  Receive Date: 20250510
  Receipt Date: 20250912
  Transmission Date: 20251020
  Serious: Yes (Disabling, Other)
  Sender: TAKEDA
  Company Number: CO-TAKEDA-2025TUS043632

PATIENT
  Age: 27 Year
  Sex: Male
  Weight: 72 kg

DRUGS (13)
  1. ADVATE [Suspect]
     Active Substance: ANTIHEMOPHILIC FACTOR, HUMAN RECOMBINANT
     Indication: Factor VIII deficiency
     Dosage: 2000 INTERNATIONAL UNIT, 3/WEEK
     Dates: start: 20030101
  2. ADVATE [Suspect]
     Active Substance: ANTIHEMOPHILIC FACTOR, HUMAN RECOMBINANT
  3. ADVATE [Suspect]
     Active Substance: ANTIHEMOPHILIC FACTOR, HUMAN RECOMBINANT
     Dosage: 2000 INTERNATIONAL UNIT, 3/WEEK
  4. ADVATE [Suspect]
     Active Substance: ANTIHEMOPHILIC FACTOR, HUMAN RECOMBINANT
  5. ANTIHEMOPHILIC FACTOR HUMAN [Suspect]
     Active Substance: ANTIHEMOPHILIC FACTOR HUMAN
     Indication: Product used for unknown indication
  6. IMMUNINE (COAGULATION FACTOR IX HUMAN) [Suspect]
     Active Substance: COAGULATION FACTOR IX HUMAN
     Indication: Prophylaxis
     Dosage: 600 INTERNATIONAL UNIT, 2/WEEK
  7. IMMUNINE (COAGULATION FACTOR IX HUMAN) [Suspect]
     Active Substance: COAGULATION FACTOR IX HUMAN
     Dosage: UNK UNK, 1/WEEK
  8. IMMUNINE (COAGULATION FACTOR IX HUMAN) [Suspect]
     Active Substance: COAGULATION FACTOR IX HUMAN
     Dosage: UNK UNK, 1/WEEK
  9. ESOMEPRAZOLE [Concomitant]
     Active Substance: ESOMEPRAZOLE
     Dosage: 20 MILLIGRAM, QD
  10. BACLOFEN [Concomitant]
     Active Substance: BACLOFEN
     Dosage: UNK UNK, Q12H
  11. LEVETIRACETAM [Concomitant]
     Active Substance: LEVETIRACETAM
     Dosage: 1000 MILLIGRAM, Q12H
  12. LEVETIRACETAM [Concomitant]
     Active Substance: LEVETIRACETAM
     Dosage: 500 MILLIGRAM, Q12H
  13. VALPROIC ACID [Concomitant]
     Active Substance: VALPROIC ACID
     Dosage: 500 MILLIGRAM, Q8HR

REACTIONS (23)
  - Injury [Recovered/Resolved]
  - Cerebrovascular accident [Unknown]
  - Subarachnoid haemorrhage [Unknown]
  - Cerebral arteriovenous malformation haemorrhagic [Unknown]
  - Mass [Unknown]
  - Haemophilic pseudotumour [Unknown]
  - Traumatic haematoma [Recovered/Resolved]
  - Localised infection [Unknown]
  - Purulent discharge [Unknown]
  - Tumour haemorrhage [Unknown]
  - Skin lesion [Unknown]
  - Haemorrhage [Recovered/Resolved]
  - Staphylococcal infection [Unknown]
  - Wheelchair user [Unknown]
  - Haematoma [Unknown]
  - Induration [Recovered/Resolved]
  - Groin pain [Recovered/Resolved]
  - Feeling hot [Recovered/Resolved]
  - Product administration interrupted [Recovered/Resolved]
  - Pain [Recovered/Resolved]
  - Ear pain [Unknown]
  - Nasopharyngitis [Unknown]
  - Oedema peripheral [Recovered/Resolved]

NARRATIVE: CASE EVENT DATE: 20150611
